FAERS Safety Report 14852003 (Version 1)
Quarter: 2018Q2

REPORT INFORMATION
  Report Type: Spontaneous
  Country: US (occurrence: US)
  Receive Date: 20180507
  Receipt Date: 20180507
  Transmission Date: 20180711
  Serious: Yes (Hospitalization, Other)
  Sender: FDA-Public Use
  Company Number: US-JNJFOC-20180437394

PATIENT
  Age: 72 Year
  Sex: Female
  Weight: 83.46 kg

DRUGS (1)
  1. AVEENO ACTIVE NATURALS ECZEMA THERAPY ITCH RELIEF BALM [Suspect]
     Active Substance: OATMEAL
     Indication: PRODUCT USED FOR UNKNOWN INDICATION
     Route: 061
     Dates: start: 20180421, end: 20180421

REACTIONS (3)
  - Facial paralysis [Recovering/Resolving]
  - Application site pain [Recovering/Resolving]
  - Application site pruritus [Recovering/Resolving]

NARRATIVE: CASE EVENT DATE: 20180422
